FAERS Safety Report 26084671 (Version 1)
Quarter: 2025Q4

REPORT INFORMATION
  Report Type: Report from Study
  Country: US (occurrence: US)
  Receive Date: 20251124
  Receipt Date: 20251124
  Transmission Date: 20260118
  Serious: Yes (Other)
  Sender: ABBVIE
  Company Number: US-ABBVIE-6559561

PATIENT
  Age: 46 Year
  Sex: Male

DRUGS (1)
  1. RINVOQ [Suspect]
     Active Substance: UPADACITINIB
     Indication: Crohn^s disease
     Dosage: EVERY OTHER DOSE
     Route: 048
     Dates: start: 20250610

REACTIONS (3)
  - Colostomy [Unknown]
  - Wrong technique in product usage process [Unknown]
  - Product residue present [Unknown]

NARRATIVE: CASE EVENT DATE: 20250101
